FAERS Safety Report 9192351 (Version 2)
Quarter: 2013Q2

REPORT INFORMATION
  Report Type: Spontaneous
  Country: DE (occurrence: DE)
  Receive Date: 20130327
  Receipt Date: 20130419
  Transmission Date: 20140414
  Serious: Yes (Life-Threatening)
  Sender: FDA-Public Use
  Company Number: DE-JNJFOC-20130312564

PATIENT
  Age: 20 Year
  Sex: Female

DRUGS (2)
  1. REMICADE [Suspect]
     Indication: CROHN^S DISEASE
     Route: 042
     Dates: start: 201205, end: 2012
  2. REMICADE [Suspect]
     Indication: CROHN^S DISEASE
     Route: 042
     Dates: start: 20130207, end: 20130207

REACTIONS (7)
  - Anaphylactic reaction [Recovered/Resolved]
  - Face oedema [Recovered/Resolved]
  - Asthma [Recovered/Resolved]
  - Infusion related reaction [Recovered/Resolved]
  - Hypotension [Recovered/Resolved]
  - Dyspnoea [Recovered/Resolved]
  - Bronchospasm [Recovered/Resolved]
